FAERS Safety Report 4365774-7 (Version None)
Quarter: 2004Q2

REPORT INFORMATION
  Report Type: 
  Country: None (occurrence: None)
  Receive Date: 20040520
  Receipt Date: 20040505
  Transmission Date: 20050107
  Serious: No
  Sender: FDA-Public Use
  Company Number: 2004CG00507

PATIENT
  Age: 63 Year
  Sex: Female
  Weight: 70 kg

DRUGS (6)
  1. NAROPIN [Suspect]
     Indication: ANAESTHESIA
     Dates: start: 20020617, end: 20020617
  2. NAROPIN [Suspect]
     Indication: POSTOPERATIVE ANALGESIA
     Dates: start: 20020617, end: 20020617
  3. NAROPIN [Suspect]
     Indication: ANAESTHESIA
     Dosage: 20 ML Q8-12H RNB
     Dates: start: 20020617, end: 20020618
  4. NAROPIN [Suspect]
     Indication: POSTOPERATIVE ANALGESIA
     Dosage: 20 ML Q8-12H RNB
     Dates: start: 20020617, end: 20020618
  5. CATAPRES [Suspect]
     Indication: POSTOPERATIVE ANALGESIA
     Dosage: 150 MG Q8-12H RNB
     Dates: start: 20020617, end: 20020618
  6. MORPHINE [Suspect]
     Indication: POSTOPERATIVE ANALGESIA
     Dosage: 1 M Q8-12H RNB
     Dates: start: 20020617, end: 20020618

REACTIONS (4)
  - DRUG EFFECT PROLONGED [None]
  - FALL [None]
  - FOOT FRACTURE [None]
  - REFLEX SYMPATHETIC DYSTROPHY [None]
